FAERS Safety Report 4758553-X (Version None)
Quarter: 2005Q3

REPORT INFORMATION
  Report Type: 
  Country: None (occurrence: None)
  Receive Date: 20050826
  Receipt Date: 20050810
  Transmission Date: 20060218
  Serious: Yes (Hospitalization)
  Sender: FDA-Public Use
  Company Number: DSA_26583_2005

PATIENT
  Age: 47 Year
  Sex: Female

DRUGS (6)
  1. DILTIAZEM HCL [Suspect]
  2. DIOVAN HCT [Concomitant]
  3. GLIBENCLAMIDE [Concomitant]
  4. OXAZEPAM [Concomitant]
  5. MIZOLASTINE [Concomitant]
  6. PREDNISOLONE [Concomitant]

REACTIONS (5)
  - ACUTE GENERALISED EXANTHEMATOUS PUSTULOSIS [None]
  - MALAISE [None]
  - PYREXIA [None]
  - SKIN TEST POSITIVE [None]
  - TOXIC EPIDERMAL NECROLYSIS [None]
